FAERS Safety Report 5839389-5 (Version None)
Quarter: 2008Q3

REPORT INFORMATION
  Report Type: 
  Country: None (occurrence: None)
  Receive Date: 20080806
  Receipt Date: 20080724
  Transmission Date: 20090109
  Serious: No
  Sender: FDA-Public Use
  Company Number: 2007JP003928

PATIENT
  Age: 6 Year
  Sex: Male
  Weight: 24.6 kg

DRUGS (1)
  1. PROTOPIC [Suspect]
     Indication: DERMATITIS ATOPIC
     Dosage: 0.03 %, TOPICAL
     Route: 061
     Dates: start: 20051213

REACTIONS (5)
  - BLOOD IMMUNOGLOBULIN E INCREASED [None]
  - EOSINOPHIL COUNT INCREASED [None]
  - IMPETIGO [None]
  - LABORATORY TEST ABNORMAL [None]
  - SKIN PAPILLOMA [None]
